FAERS Safety Report 19498228 (Version 1)
Quarter: 2021Q3

REPORT INFORMATION
  Report Type: Other
  Country: DE (occurrence: DE)
  Receive Date: 20210706
  Receipt Date: 20210706
  Transmission Date: 20211014
  Serious: Yes (Hospitalization, Other)
  Sender: FDA-Public Use
  Company Number: DE-GLENMARK PHARMACEUTICALS-2021GMK066427

PATIENT

DRUGS (2)
  1. CANDESARTAN. [Suspect]
     Active Substance: CANDESARTAN
     Indication: PRODUCT USED FOR UNKNOWN INDICATION
     Dosage: 16 MG, 2?0?0?0
     Route: 048
  2. PRAMIPEXOLE. [Suspect]
     Active Substance: PRAMIPEXOLE
     Indication: PRODUCT USED FOR UNKNOWN INDICATION
     Dosage: 0.18 MILLIGRAM, HS (0?0?0?1)
     Route: 048

REACTIONS (3)
  - Syncope [Unknown]
  - Headache [Recovering/Resolving]
  - Dizziness [Recovering/Resolving]
